FAERS Safety Report 4848520-X (Version None)
Quarter: 2005Q4

REPORT INFORMATION
  Report Type: 
  Country: None (occurrence: None)
  Receive Date: 20051206
  Receipt Date: 20051118
  Transmission Date: 20060501
  Serious: No
  Sender: FDA-Public Use
  Company Number: US200511000698

PATIENT
  Age: 57 Year
  Sex: Male

DRUGS (3)
  1. CIALIS [Suspect]
     Indication: ERECTILE DYSFUNCTION
     Dosage: 20 MG, ORAL
     Route: 048
  2. GLYBURIDE [Concomitant]
  3. METFORMIN HCL [Concomitant]

REACTIONS (7)
  - DRUG INEFFECTIVE [None]
  - FEELING DRUNK [None]
  - MALAISE [None]
  - NECK PAIN [None]
  - POOR QUALITY DRUG ADMINISTERED [None]
  - SHOULDER PAIN [None]
  - VISION BLURRED [None]
